FAERS Safety Report 4609104-1 (Version None)
Quarter: 2005Q1

REPORT INFORMATION
  Report Type: 
  Country: None (occurrence: None)
  Receive Date: 20050311
  Receipt Date: 20050228
  Transmission Date: 20050727
  Serious: No
  Sender: FDA-Public Use
  Company Number: 05H-163-0292808-00

PATIENT
  Age: 50 Year
  Sex: Male
  Weight: 72 kg

DRUGS (16)
  1. NOREPINEPHRINE INJECTION (NOREPINEPHRINE BITARTRATE) [Suspect]
     Dosage: SEE IMAGE
     Route: 042
     Dates: start: 20041020, end: 20041020
  2. NOREPINEPHRINE INJECTION (NOREPINEPHRINE BITARTRATE) [Suspect]
     Dosage: SEE IMAGE
     Route: 042
     Dates: start: 20041020, end: 20041020
  3. OXYGEN [Concomitant]
  4. ACETYLSALICYLIC ACID SRT [Concomitant]
  5. HEPARIN [Concomitant]
  6. METOPROLOL TARTRATE [Concomitant]
  7. ATORVASTATIN CALCIUM [Concomitant]
  8. NITROGLYCERIN [Concomitant]
  9. FENTANYL [Concomitant]
  10. INSULIN [Concomitant]
  11. ROCURONIUM [Concomitant]
  12. VASOPRESSIN [Concomitant]
  13. PHENYLEPHRINE [Concomitant]
  14. BIVALIRUDIN [Concomitant]
  15. LISINOPRIL [Concomitant]
  16. SUCCINYLCHOLINE CHLORIDE [Concomitant]

REACTIONS (1)
  - VENTRICULAR TACHYCARDIA [None]
